FAERS Safety Report 18397361 (Version 1)
Quarter: 2020Q4

REPORT INFORMATION
  Report Type: Spontaneous
  Country: US (occurrence: US)
  Receive Date: 20201017
  Receipt Date: 20201017
  Transmission Date: 20210114
  Serious: No
  Sender: FDA-Public Use
  Company Number: None

PATIENT
  Age: 84 Year
  Sex: Male
  Weight: 71.55 kg

DRUGS (15)
  1. ELIQUIS [Concomitant]
     Active Substance: APIXABAN
  2. TRAMADOL HCL 50 MG [Concomitant]
     Active Substance: TRAMADOL HYDROCHLORIDE
  3. COLACE CLEAR 50 MG [Concomitant]
  4. LEVOTHYROXINE SODIUM 100 MCG [Concomitant]
     Active Substance: LEVOTHYROXINE
  5. METOPROLOL SUCCINATE ER 25 MG [Concomitant]
  6. MULTIVITAMIN [Concomitant]
     Active Substance: VITAMINS
  7. PANTOPRAZOLE CHLORIDE ER 20 MEQ [Concomitant]
  8. TAMSULOSIN HCL 0.4 MG [Concomitant]
     Active Substance: TAMSULOSIN HYDROCHLORIDE
  9. LIPITOR 80 MG [Concomitant]
  10. ASPIRIN. [Concomitant]
     Active Substance: ASPIRIN
  11. CAPECITABINE. [Suspect]
     Active Substance: CAPECITABINE
     Indication: PANCREATIC CARCINOMA
     Route: 048
  12. DIPHENHYDRAMINE-APAP 25-500 MG [Concomitant]
  13. COLACE [Concomitant]
     Active Substance: DOCUSATE SODIUM
  14. NIACIN 500 MG [Concomitant]
  15. PACERONE 200 MG [Concomitant]

REACTIONS (1)
  - Stomatitis [None]

NARRATIVE: CASE EVENT DATE: 20201017
